FAERS Safety Report 8948503 (Version 1)
Quarter: 2012Q4

REPORT INFORMATION
  Report Type: Spontaneous
  Country: FR (occurrence: None)
  Receive Date: 20121123
  Receipt Date: 20121123
  Transmission Date: 20130627
  Serious: Yes (Hospitalization)
  Sender: FDA-Public Use
  Company Number: DSA_60957_2012

PATIENT
  Age: 81 Year
  Sex: Female

DRUGS (6)
  1. FLAGYL [Suspect]
     Route: 042
  2. ROCEPHIN [Suspect]
     Route: 042
     Dates: start: 20121001
  3. XANAX [Concomitant]
  4. DOLIPRANE [Concomitant]
  5. BRONCHODUAL [Concomitant]
  6. MONICOR [Concomitant]

REACTIONS (2)
  - Erythema [None]
  - Pruritus [None]
